FAERS Safety Report 15832259 (Version 6)
Quarter: 2020Q4

REPORT INFORMATION
  Report Type: Report from Study
  Country: CA (occurrence: CA)
  Receive Date: 20190116
  Receipt Date: 20201008
  Transmission Date: 20210113
  Serious: Yes (Hospitalization, Other)
  Sender: FDA-Public Use
  Company Number: CA-SA-2016SA192537

PATIENT

DRUGS (19)
  1. VANDETANIB. [Suspect]
     Active Substance: VANDETANIB
     Dosage: 300 MG, QD
     Route: 048
     Dates: start: 20200107, end: 20200112
  2. NORTRIPTYLINE [Concomitant]
     Active Substance: NORTRIPTYLINE
     Dosage: 25 MG,QD
     Route: 065
  3. AVENTYL [Concomitant]
     Active Substance: NORTRIPTYLINE HYDROCHLORIDE
     Dosage: 10 MG,HS
     Route: 065
  4. SYNTHROID [Concomitant]
     Active Substance: LEVOTHYROXINE SODIUM
     Dosage: 125 UG,QD
     Route: 065
  5. ELTROXIN [Concomitant]
     Active Substance: LEVOTHYROXINE
     Dosage: 200 MCG,QOD
     Route: 065
  6. OXYCODONE HYDROCHLORIDE;PARACETAMOL [Concomitant]
     Active Substance: ACETAMINOPHEN\OXYCODONE HYDROCHLORIDE
     Dosage: UNK UNK,PRN
     Route: 065
  7. TYLENOL [Concomitant]
     Active Substance: ACETAMINOPHEN
     Dosage: 1-2COS Q6H PRN
     Route: 065
  8. GABAPENTIN. [Concomitant]
     Active Substance: GABAPENTIN
     Dosage: 300 MG, TID
     Route: 065
  9. GABAPENTIN. [Concomitant]
     Active Substance: GABAPENTIN
     Dosage: 300 MG,TID
     Route: 065
  10. SYNTHROID [Concomitant]
     Active Substance: LEVOTHYROXINE SODIUM
     Dosage: 200 UG,QD
     Route: 065
     Dates: start: 20170911
  11. PARACETAMOL [Concomitant]
     Active Substance: ACETAMINOPHEN
     Dosage: 3 DF,PRN
     Route: 065
  12. ZOPICLONE [Concomitant]
     Active Substance: ZOPICLONE
     Dosage: 7.5 MG,HS
     Route: 065
  13. NEXIUM [Concomitant]
     Active Substance: ESOMEPRAZOLE MAGNESIUM
     Dosage: 40 MG, QD
  14. OXYCOCET [Concomitant]
     Active Substance: ACETAMINOPHEN\OXYCODONE HYDROCHLORIDE
     Dosage: 1CO-2CO Q 4-6H PRN
     Route: 048
  15. VANDETANIB. [Suspect]
     Active Substance: VANDETANIB
     Indication: MEDULLARY THYROID CANCER
     Dosage: 300 MG,QD
     Route: 048
     Dates: start: 20160903
  16. DOXYCYCLINE. [Concomitant]
     Active Substance: DOXYCYCLINE
     Dosage: 100 MG,BID
     Route: 048
  17. VANDETANIB. [Suspect]
     Active Substance: VANDETANIB
     Dosage: 300 MG, QD
     Route: 048
  18. CLINDAMYCIN HYDROCHLORIDE. [Concomitant]
     Active Substance: CLINDAMYCIN HYDROCHLORIDE
     Dosage: UNK UNK,UNK
     Route: 061
  19. SENOKOT [Concomitant]
     Active Substance: SENNOSIDES

REACTIONS (29)
  - Dysphagia [Unknown]
  - Lentigo maligna [Unknown]
  - Asthenia [Not Recovered/Not Resolved]
  - Paralysis [Unknown]
  - Acne [Recovering/Resolving]
  - Intentional dose omission [Unknown]
  - Pleural disorder [Not Recovered/Not Resolved]
  - Erythema [Recovered/Resolved]
  - Facial paralysis [Unknown]
  - Dyspnoea [Unknown]
  - Cranial nerve paralysis [Not Recovered/Not Resolved]
  - Bladder disorder [Unknown]
  - Dysarthria [Not Recovered/Not Resolved]
  - Head discomfort [Recovered/Resolved]
  - Abdominal pain [Not Recovered/Not Resolved]
  - Diverticulitis [Not Recovered/Not Resolved]
  - Acne [Not Recovered/Not Resolved]
  - Ocular hyperaemia [Recovered/Resolved]
  - Fatigue [Not Recovered/Not Resolved]
  - Therapy interrupted [Unknown]
  - Lower respiratory tract infection [Unknown]
  - Dysphonia [Not Recovered/Not Resolved]
  - Depression [Not Recovered/Not Resolved]
  - Hypertension [Recovered/Resolved]
  - Anaphylactic shock [Unknown]
  - Rash [Not Recovered/Not Resolved]
  - Bowel movement irregularity [Not Recovered/Not Resolved]
  - Chest pain [Not Recovered/Not Resolved]
  - Headache [Not Recovered/Not Resolved]

NARRATIVE: CASE EVENT DATE: 20160903
